FAERS Safety Report 10462060 (Version 2)
Quarter: 2014Q4

REPORT INFORMATION
  Report Type: Report from Study
  Country: CA (occurrence: CA)
  Receive Date: 20140918
  Receipt Date: 20141120
  Transmission Date: 20150528
  Serious: Yes (Other)
  Sender: FDA-Public Use
  Company Number: CA-SA-2014SA125537

PATIENT
  Age: 84 Year
  Sex: Female

DRUGS (17)
  1. HYDROMORPHONE [Concomitant]
     Active Substance: HYDROMORPHONE
     Indication: PAIN
  2. ATENOL [Concomitant]
     Active Substance: ATENOLOL
     Indication: BLOOD PRESSURE
  3. FOSAVANCE [Concomitant]
     Active Substance: ALENDRONATE SODIUM\CHOLECALCIFEROL
     Dosage: FREQUENCY: ONE PER WEEK
  4. TRAZODONE [Concomitant]
     Active Substance: TRAZODONE HYDROCHLORIDE
     Indication: SLEEP DISORDER
  5. CALCIUM [Concomitant]
     Active Substance: CALCIUM
  6. HYDROCHLOROTHIAZIDE. [Concomitant]
     Active Substance: HYDROCHLOROTHIAZIDE
     Dosage: STRENGTH: 2.5 MG 1/2 TAB
  7. CIMZIA [Suspect]
     Active Substance: CERTOLIZUMAB PEGOL
     Indication: RHEUMATOID ARTHRITIS
     Dosage: FREQUENCY: 1 EVERY 2 WEEK
     Route: 058
     Dates: end: 20130514
  8. CELEBREX [Concomitant]
     Active Substance: CELECOXIB
  9. LASIX [Suspect]
     Active Substance: FUROSEMIDE
     Indication: PLEURAL EFFUSION
     Route: 048
     Dates: start: 20130515, end: 20130517
  10. VITAMIN C [Concomitant]
     Active Substance: ASCORBIC ACID
  11. FOLIC ACID. [Concomitant]
     Active Substance: FOLIC ACID
  12. OMEPRAZOLE. [Concomitant]
     Active Substance: OMEPRAZOLE
  13. WARFARIN [Concomitant]
     Active Substance: WARFARIN
     Indication: CARDIAC VALVE DISEASE
     Dosage: DOSE: AS PER BLOOD WORK FROM 10 YEARS
  14. FERROUS FUMARATE [Concomitant]
     Active Substance: FERROUS FUMARATE
  15. LOSEC [Concomitant]
     Active Substance: OMEPRAZOLE
  16. METHOTREXATE [Concomitant]
     Active Substance: METHOTREXATE
     Indication: RHEUMATOID ARTHRITIS
     Dosage: FREQUENCY: ONE PER WEEK
     Route: 048
     Dates: start: 2008
  17. ZINC [Concomitant]
     Active Substance: ZINC\ZINC CHLORIDE

REACTIONS (13)
  - Upper respiratory tract infection [Recovered/Resolved]
  - Nasopharyngitis [Not Recovered/Not Resolved]
  - Fall [Recovered/Resolved]
  - Back pain [Not Recovered/Not Resolved]
  - Cough [Recovered/Resolved]
  - Haemorrhage [Unknown]
  - Musculoskeletal chest pain [Unknown]
  - Asthenia [Not Recovered/Not Resolved]
  - Fatigue [Unknown]
  - Dizziness [Recovered/Resolved]
  - Lip injury [Unknown]
  - Pulmonary oedema [Not Recovered/Not Resolved]
  - Limb injury [Unknown]

NARRATIVE: CASE EVENT DATE: 201305
